FAERS Safety Report 5007136-5 (Version None)
Quarter: 2006Q2

REPORT INFORMATION
  Report Type: 
  Country: None (occurrence: None)
  Receive Date: 20060519
  Receipt Date: 20060515
  Transmission Date: 20061013
  Serious: Yes (Other)
  Sender: FDA-Public Use
  Company Number: US-MERCK-0605USA02827

PATIENT
  Age: 76 Year
  Sex: Female

DRUGS (3)
  1. FOSAMAX [Suspect]
     Indication: OSTEOPOROSIS
     Route: 048
     Dates: start: 20040101
  2. SYNTHROID [Concomitant]
     Route: 065
  3. VYTORIN [Concomitant]
     Route: 065

REACTIONS (2)
  - THERAPEUTIC RESPONSE UNEXPECTED [None]
  - THYROID DISORDER [None]
